FAERS Safety Report 8855002 (Version 3)
Quarter: 2012Q4

REPORT INFORMATION
  Report Type: 
  Country: US (occurrence: US)
  Receive Date: 20121023
  Receipt Date: 20121112
  Transmission Date: 20130627
  Serious: Yes (Other)
  Sender: FDA-Public Use
  Company Number: US-PFIZER INC-2012260607

PATIENT
  Sex: Male

DRUGS (1)
  1. PROTONIX [Suspect]

REACTIONS (4)
  - Gastric ulcer haemorrhage [Unknown]
  - Haematemesis [Unknown]
  - Tongue biting [Unknown]
  - Oesophageal disorder [Unknown]
